FAERS Safety Report 5383034-2 (Version None)
Quarter: 2007Q2

REPORT INFORMATION
  Report Type: 
  Country: None (occurrence: None)
  Receive Date: 20070629
  Receipt Date: 20061219
  Transmission Date: 20071010
  Serious: Yes (Hospitalization)
  Sender: FDA-Public Use
  Company Number: US200612003578

PATIENT
  Sex: Female

DRUGS (3)
  1. HUMULIN N [Suspect]
     Indication: DIABETES MELLITUS
     Dates: start: 19940101
  2. HUMALOG [Suspect]
     Indication: DIABETES MELLITUS
     Dates: start: 20060901
  3. HUMALOG PEN (HUMALOG PEN) [Concomitant]

REACTIONS (3)
  - ALOPECIA [None]
  - FOOD POISONING [None]
  - SKIN DISORDER [None]
